FAERS Safety Report 24390930 (Version 1)
Quarter: 2024Q4

REPORT INFORMATION
  Report Type: Other
  Country: US (occurrence: US)
  Receive Date: 20241003
  Receipt Date: 20241003
  Transmission Date: 20250114
  Serious: Yes (Other)
  Sender: BIOCON
  Company Number: US-MLMSERVICE-20240918-PI195862-00147-1

PATIENT

DRUGS (3)
  1. PEGFILGRASTIM [Suspect]
     Active Substance: PEGFILGRASTIM
     Indication: Febrile neutropenia
     Dosage: UNK
     Route: 065
     Dates: start: 20240408
  2. AZACITIDINE [Concomitant]
     Active Substance: AZACITIDINE
     Indication: Blast cell crisis
     Dosage: UNK
     Route: 065
  3. VENETOCLAX [Concomitant]
     Active Substance: VENETOCLAX
     Indication: Blast cell crisis
     Dosage: UNK
     Route: 065

REACTIONS (1)
  - Splenic infarction [Unknown]

NARRATIVE: CASE EVENT DATE: 20240401
